FAERS Safety Report 8185815-9 (Version None)
Quarter: 2012Q1

REPORT INFORMATION
  Report Type: 
  Country: None (occurrence: None)
  Receive Date: 20120305
  Receipt Date: 20120224
  Transmission Date: 20120608
  Serious: Yes (Hospitalization, Disabling, Other)
  Sender: FDA-Public Use
  Company Number: US-ASTRAZENECA-2012SE13226

PATIENT
  Age: 66 Year
  Sex: Female
  Weight: 36.3 kg

DRUGS (13)
  1. ALBUTEROL SULFATE AND IPRATROPIUM BROMIDE [Interacting]
     Indication: DYSPNOEA
     Dosage: FOUR TIMES A DAY
     Route: 065
  2. CHANTIX [Interacting]
     Indication: SMOKING CESSATION THERAPY
     Route: 048
     Dates: start: 20110901, end: 20110901
  3. HYDROCODONE BITARTRATE [Interacting]
     Indication: ARTHRITIS
     Dosage: FOUR TIMES A DAY
     Route: 065
     Dates: start: 20110101
  4. CALCIUM CARBONATE [Interacting]
     Dosage: TWICE A DAY
     Route: 065
     Dates: start: 20111201
  5. ASPIRIN [Interacting]
     Route: 065
     Dates: start: 20111001
  6. CHANTIX [Interacting]
     Route: 048
     Dates: start: 20120101, end: 20120101
  7. ADVAIR DISKUS 100/50 [Interacting]
     Indication: DYSPNOEA
     Dosage: 500/50 MCG FOUR TIMES A DAY
     Route: 065
  8. KLONOPIN [Interacting]
     Indication: NERVOUS SYSTEM DISORDER
     Dosage: FOUR TIMES A DAY
     Route: 065
     Dates: start: 20110101
  9. METOCLOPRAMIDE [Interacting]
     Indication: GASTRIC DISORDER
     Dosage: THREE TIMES A DAY
     Route: 065
     Dates: start: 20111001
  10. LEVOTHYROXINE SODIUM [Interacting]
     Indication: THYROID DISORDER
     Route: 065
     Dates: start: 19950101
  11. NEXIUM [Suspect]
     Indication: GASTRIC DISORDER
     Dosage: DAILY
     Route: 048
  12. SINGULAIR [Interacting]
     Indication: DYSPNOEA
     Dosage: DAILY
     Route: 065
  13. PROAIR HFA [Interacting]
     Indication: DYSPNOEA
     Dosage: FOUR TIMES A DAY
     Route: 065

REACTIONS (7)
  - MENTAL IMPAIRMENT [None]
  - APHASIA [None]
  - ABASIA [None]
  - OFF LABEL USE [None]
  - GAIT DISTURBANCE [None]
  - DRUG INTERACTION [None]
  - CEREBROVASCULAR ACCIDENT [None]
